FAERS Safety Report 9602374 (Version 1)
Quarter: 2013Q4

REPORT INFORMATION
  Report Type: Report from Study
  Country: BR (occurrence: BR)
  Receive Date: 20131007
  Receipt Date: 20131007
  Transmission Date: 20140711
  Serious: Yes (Other)
  Sender: FDA-Public Use
  Company Number: PHHY2013BR110966

PATIENT
  Age: 71 Year
  Sex: Female

DRUGS (8)
  1. AMOXICILLIN + CLAVULANATE POTASSIUM [Suspect]
     Indication: INFECTIVE EXACERBATION OF CHRONIC OBSTRUCTIVE AIRWAYS DISEASE
  2. AMLODIPINE [Suspect]
  3. VALSARTAN [Suspect]
  4. SALMETEROL/FLUTICASONPROPIONAAT [Concomitant]
  5. INDACATEROL [Concomitant]
     Dosage: 300 UG, UNK
  6. TIOTROPIUM [Concomitant]
  7. PHENYTOIN [Concomitant]
     Indication: EPILEPSY
  8. PHENOBARBITAL [Concomitant]
     Indication: EPILEPSY

REACTIONS (8)
  - Wheezing [Unknown]
  - Dyspnoea [Unknown]
  - Chronic obstructive pulmonary disease [Unknown]
  - Obesity [Unknown]
  - Tachypnoea [Unknown]
  - Epilepsy [Unknown]
  - Blood pressure increased [Unknown]
  - Infective exacerbation of chronic obstructive airways disease [Unknown]
